FAERS Safety Report 15273937 (Version 1)
Quarter: 2018Q3

REPORT INFORMATION
  Report Type: Spontaneous
  Country: US (occurrence: US)
  Receive Date: 20180814
  Receipt Date: 20180814
  Transmission Date: 20181010
  Serious: No
  Sender: FDA-Public Use
  Company Number: US-009507513-1808USA002056

PATIENT
  Age: 85 Year
  Sex: Male

DRUGS (12)
  1. LUPRON [Concomitant]
     Active Substance: LEUPROLIDE ACETATE
  2. CYANOCOBALAMIN. [Concomitant]
     Active Substance: CYANOCOBALAMIN
  3. KEYTRUDA [Suspect]
     Active Substance: PEMBROLIZUMAB
     Indication: PROSTATE CANCER
     Dosage: UNK UNK, EVERY 3 WEEKS
     Route: 042
     Dates: start: 20180731, end: 20180731
  4. PLAQUENIL [Concomitant]
     Active Substance: HYDROXYCHLOROQUINE SULFATE
  5. FERROUS SULFATE. [Concomitant]
     Active Substance: FERROUS SULFATE
  6. AMIODARONE [Concomitant]
     Active Substance: AMIODARONE
  7. METOPROLOL. [Concomitant]
     Active Substance: METOPROLOL
  8. LASIX [Concomitant]
     Active Substance: FUROSEMIDE
  9. VITAMINS (UNSPECIFIED) [Concomitant]
     Active Substance: VITAMINS
  10. PREDNISONE. [Concomitant]
     Active Substance: PREDNISONE
  11. ASCORBIC ACID. [Concomitant]
     Active Substance: ASCORBIC ACID
  12. ASPIRIN. [Concomitant]
     Active Substance: ASPIRIN

REACTIONS (3)
  - Fatigue [Not Recovered/Not Resolved]
  - Asthenia [Not Recovered/Not Resolved]
  - Product use in unapproved indication [Unknown]

NARRATIVE: CASE EVENT DATE: 20180731
